FAERS Safety Report 19357279 (Version 8)
Quarter: 2021Q4

REPORT INFORMATION
  Report Type: Report from Study
  Country: JP (occurrence: JP)
  Receive Date: 20210602
  Receipt Date: 20211012
  Transmission Date: 20220304
  Serious: Yes (Other)
  Sender: FDA-Public Use
  Company Number: JP-AMRYT PHARMACEUTICALS DAC-AEGR005177

PATIENT

DRUGS (12)
  1. JUXTAPID [Suspect]
     Active Substance: LOMITAPIDE MESYLATE
     Indication: Type IIa hyperlipidaemia
     Dosage: 5 MILLIGRAM, QD
     Route: 048
     Dates: start: 20201029
  2. JUXTAPID [Suspect]
     Active Substance: LOMITAPIDE MESYLATE
     Dosage: 10 MILLIGRAM QD
     Route: 048
     Dates: start: 20201126
  3. JUXTAPID [Suspect]
     Active Substance: LOMITAPIDE MESYLATE
     Dosage: 15 MILLIGRAM, QD
     Route: 048
     Dates: start: 20210107
  4. JUXTAPID [Suspect]
     Active Substance: LOMITAPIDE MESYLATE
     Dosage: 20 MILLIGRAM, QD
     Route: 048
     Dates: start: 20210218, end: 20210512
  5. JUXTAPID [Suspect]
     Active Substance: LOMITAPIDE MESYLATE
     Dosage: 25 MILLIGRAM, QD
     Route: 048
     Dates: start: 20210513, end: 20210520
  6. JUXTAPID [Suspect]
     Active Substance: LOMITAPIDE MESYLATE
     Dosage: 25 MILLIGRAM, QD
     Route: 048
     Dates: start: 20210701
  7. ATORVASTATIN CALCIUM [Concomitant]
     Active Substance: ATORVASTATIN CALCIUM
     Indication: Type IIa hyperlipidaemia
     Dosage: 40 MILLIGRAM, QD
     Route: 048
  8. COLESTILAN CHLORIDE [Concomitant]
     Active Substance: COLESTILAN CHLORIDE
     Indication: Type IIa hyperlipidaemia
     Dosage: 40 MILLIGRAM, QD
     Route: 048
  9. PROBUCOL [Concomitant]
     Active Substance: PROBUCOL
     Indication: Type IIa hyperlipidaemia
     Dosage: 1000 MILLIGRAM, QD
     Route: 048
  10. EZETIMIBE [Concomitant]
     Active Substance: EZETIMIBE
     Indication: Type IIa hyperlipidaemia
     Dosage: 10 MILLIGRAM, QD
     Route: 048
  11. EVOLOCUMAB [Concomitant]
     Active Substance: EVOLOCUMAB
     Indication: Type IIa hyperlipidaemia
     Dosage: 420 MILLIGRAM, 2 WEEKS
     Route: 065
  12. EVOLOCUMAB [Concomitant]
     Active Substance: EVOLOCUMAB
     Dosage: UNK

REACTIONS (2)
  - Neutrophil count decreased [Recovered/Resolved]
  - Faeces soft [Not Recovered/Not Resolved]

NARRATIVE: CASE EVENT DATE: 20210121
